FAERS Safety Report 12204541 (Version 3)
Quarter: 2016Q2

REPORT INFORMATION
  Report Type: Spontaneous
  Country: US (occurrence: US)
  Receive Date: 20160323
  Receipt Date: 20160524
  Transmission Date: 20160815
  Serious: Yes (Death, Hospitalization)
  Sender: FDA-Public Use
  Company Number: US-PFIZER INC-2016158462

PATIENT
  Age: 72 Year
  Sex: Female

DRUGS (1)
  1. XALKORI [Suspect]
     Active Substance: CRIZOTINIB
     Indication: UTERINE CANCER
     Dosage: UNK, 2X/DAY
     Dates: start: 201601

REACTIONS (3)
  - Uterine cancer [Fatal]
  - Product use issue [Unknown]
  - Disease progression [Fatal]
